FAERS Safety Report 8078530-3 (Version None)
Quarter: 2012Q1

REPORT INFORMATION
  Report Type: 
  Country: None (occurrence: None)
  Receive Date: 20120124
  Receipt Date: 20120117
  Transmission Date: 20120608
  Serious: Yes (Other)
  Sender: FDA-Public Use
  Company Number: ACO_28577_2011

PATIENT
  Sex: Female
  Weight: 124.7 kg

DRUGS (2)
  1. BETASERON [Concomitant]
  2. AMPYRA [Suspect]
     Indication: PRODUCT USED FOR UNKNOWN INDICATION
     Dosage: 10 MG, Q 12HRS
     Dates: start: 20100401

REACTIONS (1)
  - PNEUMONIA [None]
